FAERS Safety Report 10220842 (Version 2)
Quarter: 2014Q2

REPORT INFORMATION
  Report Type: Report from Study
  Country: IT (occurrence: IT)
  Receive Date: 20140606
  Receipt Date: 20140606
  Transmission Date: 20141212
  Serious: Yes (Hospitalization)
  Sender: FDA-Public Use
  Company Number: IT-TEVA-465787USA

PATIENT
  Age: 74 Year
  Sex: Female

DRUGS (4)
  1. BENDAMUSTINE [Suspect]
     Route: 065
     Dates: start: 20100804
  2. LEVOTHYROXINE [Concomitant]
     Indication: HYPOTHYROIDISM
  3. TIOTROPIUM BROMIDE [Concomitant]
  4. LOSARTAN AND HYDROCHLOROTHIAZIDE [Concomitant]
     Indication: CHRONIC OBSTRUCTIVE PULMONARY DISEASE

REACTIONS (2)
  - Chronic obstructive pulmonary disease [Recovered/Resolved]
  - Prophylaxis [Recovered/Resolved]
